FAERS Safety Report 6054964-3 (Version None)
Quarter: 2009Q1

REPORT INFORMATION
  Report Type: 
  Country: None (occurrence: None)
  Receive Date: 20090128
  Receipt Date: 20080425
  Transmission Date: 20090719
  Serious: Yes (Death, Hospitalization, Other)
  Sender: FDA-Public Use
  Company Number: IT-RB-000981-08

PATIENT
  Age: 33 Year
  Sex: Male

DRUGS (2)
  1. SUBUTEX [Suspect]
     Route: 060
     Dates: start: 20060801, end: 20071128
  2. CLOPIXOL [Concomitant]
     Indication: DRUG USE FOR UNKNOWN INDICATION
     Dosage: DOSE UNKNOWN
     Route: 065
     Dates: end: 20070601

REACTIONS (4)
  - BRAIN OEDEMA [None]
  - COMA [None]
  - PSYCHOMOTOR HYPERACTIVITY [None]
  - VOMITING [None]
